FAERS Safety Report 5329833-4 (Version None)
Quarter: 2007Q2

REPORT INFORMATION
  Report Type: 
  Country: None (occurrence: None)
  Receive Date: 20070521
  Receipt Date: 20070510
  Transmission Date: 20071010
  Serious: Yes (Life-Threatening)
  Sender: FDA-Public Use
  Company Number: JP-ROCHE-496805

PATIENT
  Age: 41 Year
  Sex: Male
  Weight: 73 kg

DRUGS (3)
  1. TAMIFLU [Suspect]
     Route: 048
     Dates: start: 20070406, end: 20070406
  2. CALONAL [Concomitant]
     Route: 048
     Dates: start: 20070406, end: 20070406
  3. CODEINE PHOSPHATE [Concomitant]
     Dosage: TAKEN AS NEEDED.
     Route: 048
     Dates: start: 20070406, end: 20070406

REACTIONS (1)
  - LOSS OF CONSCIOUSNESS [None]
